FAERS Safety Report 4633067-6 (Version None)
Quarter: 2005Q2

REPORT INFORMATION
  Report Type: 
  Country: None (occurrence: None)
  Receive Date: 20050411
  Receipt Date: 20050411
  Transmission Date: 20051028
  Serious: Yes (Other)
  Sender: FDA-Public Use
  Company Number: None

PATIENT
  Sex: Male
  Weight: 81.6475 kg

DRUGS (3)
  1. STRATTERA [Suspect]
     Indication: ATTENTION DEFICIT/HYPERACTIVITY DISORDER
     Dosage: 80 MG   QAM   ORAL
     Route: 048
     Dates: start: 20041218, end: 20050210
  2. NASACORT AQ [Concomitant]
  3. PSEUDO/APAP [Concomitant]

REACTIONS (4)
  - BLOOD PRESSURE INCREASED [None]
  - PALPITATIONS [None]
  - PREMATURE EJACULATION [None]
  - SEXUAL DYSFUNCTION [None]
